FAERS Safety Report 18647224 (Version 1)
Quarter: 2020Q4

REPORT INFORMATION
  Report Type: Spontaneous
  Country: CN (occurrence: CN)
  Receive Date: 20201222
  Receipt Date: 20201222
  Transmission Date: 20210114
  Serious: Yes (Hospitalization, Other)
  Sender: FDA-Public Use
  Company Number: CN-ABBVIE-20K-035-3697069-00

PATIENT
  Age: 29 Year
  Sex: Male

DRUGS (3)
  1. SOFOSBUVIR AND VELPATASVIR [Suspect]
     Active Substance: SOFOSBUVIR\VELPATASVIR
     Indication: ANTIVIRAL PROPHYLAXIS
     Route: 048
     Dates: start: 20201201, end: 20201211
  2. ALUVIA [Suspect]
     Active Substance: LOPINAVIR\RITONAVIR
     Indication: PROPHYLAXIS AGAINST HIV INFECTION
     Route: 048
     Dates: start: 201908, end: 20201026
  3. ALUVIA [Suspect]
     Active Substance: LOPINAVIR\RITONAVIR
     Route: 048
     Dates: start: 20201105, end: 20201208

REACTIONS (9)
  - Drug-induced liver injury [Unknown]
  - Asthenia [Unknown]
  - Gastric ulcer [Unknown]
  - Hepatitis E [Unknown]
  - Chromaturia [Not Recovered/Not Resolved]
  - Hepatic function abnormal [Recovering/Resolving]
  - Jaundice [Unknown]
  - Decreased appetite [Unknown]
  - Fatigue [Not Recovered/Not Resolved]

NARRATIVE: CASE EVENT DATE: 2020
